FAERS Safety Report 8529802-7 (Version None)
Quarter: 2012Q3

REPORT INFORMATION
  Report Type: 
  Country: None (occurrence: None)
  Receive Date: 20120723
  Receipt Date: 20120718
  Transmission Date: 20120928
  Serious: Yes (Death)
  Sender: FDA-Public Use
  Company Number: CO-JNJFOC-20120707351

PATIENT
  Age: 12 Month
  Sex: Male

DRUGS (1)
  1. TOPIRAMATE [Suspect]
     Indication: EPILEPSY
     Route: 048
     Dates: start: 20110405, end: 20110423

REACTIONS (2)
  - DRUG ADMINISTERED TO PATIENT OF INAPPROPRIATE AGE [None]
  - CARDIO-RESPIRATORY ARREST [None]
